FAERS Safety Report 18616805 (Version 1)
Quarter: 2020Q4

REPORT INFORMATION
  Report Type: Spontaneous
  Country: US (occurrence: US)
  Receive Date: 20201215
  Receipt Date: 20201215
  Transmission Date: 20210114
  Serious: Yes (Hospitalization)
  Sender: FDA-Public Use
  Company Number: US-VIFOR (INTERNATIONAL) INC.-VIT-2020-12018

PATIENT
  Age: 47 Year
  Sex: Male
  Weight: 76 kg

DRUGS (4)
  1. MIRCERA [Suspect]
     Active Substance: METHOXY POLYETHYLENE GLYCOL-EPOETIN BETA
     Dosage: THIRD DOSE
     Route: 040
     Dates: start: 20201110, end: 20201110
  2. VENOFER [Suspect]
     Active Substance: IRON SUCROSE
     Indication: ANAEMIA
     Route: 040
     Dates: start: 20200829, end: 20201110
  3. VENOFER [Suspect]
     Active Substance: IRON SUCROSE
     Indication: CHRONIC KIDNEY DISEASE
  4. MIRCERA [Suspect]
     Active Substance: METHOXY POLYETHYLENE GLYCOL-EPOETIN BETA
     Indication: NEPHROGENIC ANAEMIA
     Dosage: FIRST DOSE
     Route: 040
     Dates: start: 20201013

REACTIONS (5)
  - Unresponsive to stimuli [Recovering/Resolving]
  - Hyperhidrosis [Unknown]
  - Drug hypersensitivity [Unknown]
  - Tremor [Unknown]
  - Blood pressure increased [Unknown]

NARRATIVE: CASE EVENT DATE: 20201110
